FAERS Safety Report 4521271-7 (Version None)
Quarter: 2004Q4

REPORT INFORMATION
  Report Type: 
  Country: None (occurrence: None)
  Receive Date: 20041208
  Receipt Date: 20041019
  Transmission Date: 20050328
  Serious: Yes (Hospitalization)
  Sender: FDA-Public Use
  Company Number: 2004-0273

PATIENT
  Age: 74 Year
  Sex: Female

DRUGS (3)
  1. RANIPLEX [Suspect]
     Indication: PROPHYLACTIC CHEMOTHERAPY
     Dosage: 25MGML SINGLE DOSE
     Route: 042
     Dates: start: 20041004, end: 20041004
  2. TAXOL [Concomitant]
     Indication: OVARIAN CANCER
     Dates: start: 20040701
  3. CORTICOSTEROID [Concomitant]
     Indication: PROPHYLACTIC CHEMOTHERAPY
     Dates: start: 20040701

REACTIONS (8)
  - ABDOMINAL PAIN UPPER [None]
  - HYPERHIDROSIS [None]
  - INFUSION RELATED REACTION [None]
  - MALAISE [None]
  - NAUSEA [None]
  - NO REACTION ON PREVIOUS EXPOSURE TO DRUG [None]
  - PAINFUL RESPIRATION [None]
  - VOMITING [None]
